FAERS Safety Report 8905172 (Version 1)
Quarter: 2012Q4

REPORT INFORMATION
  Report Type: 
  Country: CA (occurrence: CA)
  Receive Date: 20121111
  Receipt Date: 20121111
  Transmission Date: 20130627
  Serious: Yes (Hospitalization)
  Sender: FDA-Public Use
  Company Number: PHMT2007CA00663

PATIENT
  Sex: Male

DRUGS (6)
  1. SANDOSTATIN LAR [Suspect]
     Indication: NEUROENDOCRINE TUMOUR
     Dosage: 20 mg, UNK
     Route: 030
     Dates: start: 20061128
  2. SANDOSTATIN [Suspect]
     Route: 058
     Dates: start: 20060915
  3. HYZAAR [Concomitant]
  4. MULTI-VITAMINS [Concomitant]
  5. TIAZAC [Concomitant]
  6. TYLENOL [Concomitant]

REACTIONS (5)
  - Salmonellosis [Recovering/Resolving]
  - Pyrexia [Recovering/Resolving]
  - Decreased appetite [Recovering/Resolving]
  - Haemoglobin decreased [Recovering/Resolving]
  - Oedema [Unknown]
